FAERS Safety Report 25044761 (Version 1)
Quarter: 2025Q1

REPORT INFORMATION
  Report Type: Spontaneous
  Country: HN (occurrence: HN)
  Receive Date: 20250306
  Receipt Date: 20250306
  Transmission Date: 20250408
  Serious: Yes (Other)
  Sender: SANDOZ
  Company Number: HN-002147023-NVSC2020HN224305

PATIENT
  Age: 68 Year
  Sex: Female

DRUGS (2)
  1. METFORMIN HYDROCHLORIDE\VILDAGLIPTIN [Suspect]
     Active Substance: METFORMIN HYDROCHLORIDE\VILDAGLIPTIN
     Indication: Diabetes mellitus
     Dosage: UNK,2 TO 3 YEARS AGO APPROXIMATELY 1 DOSAGE FORM, BID 50/850MG
     Route: 065
     Dates: start: 2017
  2. METFORMIN [Suspect]
     Active Substance: METFORMIN HYDROCHLORIDE
     Indication: Product used for unknown indication
     Route: 065

REACTIONS (15)
  - Diabetes mellitus [Unknown]
  - Diarrhoea [Unknown]
  - Tension [Unknown]
  - Tachycardia [Unknown]
  - Anxiety [Unknown]
  - Constipation [Unknown]
  - Flatulence [Not Recovered/Not Resolved]
  - Blood glucose abnormal [Unknown]
  - Malaise [Unknown]
  - Disturbance in attention [Unknown]
  - Pain [Unknown]
  - Fatigue [Unknown]
  - Colon injury [Unknown]
  - Intellectual disability [Unknown]
  - Abdominal discomfort [Unknown]

NARRATIVE: CASE EVENT DATE: 20170101
